FAERS Safety Report 5523430-3 (Version None)
Quarter: 2007Q4

REPORT INFORMATION
  Report Type: 
  Country: None (occurrence: None)
  Receive Date: 20071121
  Receipt Date: 20071112
  Transmission Date: 20080405
  Serious: Yes (Life-Threatening, Hospitalization)
  Sender: FDA-Public Use
  Company Number: JP-AMGEN-US252294

PATIENT
  Sex: Female
  Weight: 46 kg

DRUGS (15)
  1. ENBREL [Suspect]
     Indication: RHEUMATOID ARTHRITIS
     Route: 058
     Dates: start: 20050421, end: 20061221
  2. NORVASC [Concomitant]
     Indication: HYPERTENSION
     Route: 048
     Dates: end: 20070820
  3. DIOVAN [Concomitant]
     Indication: HYPERTENSION
     Route: 048
     Dates: end: 20070820
  4. BONALON [Concomitant]
     Indication: OSTEOPOROSIS
     Route: 048
     Dates: end: 20070820
  5. ALFACALCIDOL [Concomitant]
     Indication: OSTEOPOROSIS
     Route: 048
     Dates: end: 20070820
  6. GASTER [Concomitant]
     Dosage: UNSPECIFIED
     Route: 048
  7. PEON [Concomitant]
     Indication: PRURITUS
     Route: 048
     Dates: end: 20070820
  8. MAGNESIUM OXIDE [Concomitant]
     Indication: DIARRHOEA
     Route: 048
     Dates: end: 20070820
  9. ACINON [Concomitant]
     Indication: GASTRITIS
     Route: 048
     Dates: end: 20070820
  10. PROGRAF [Concomitant]
     Indication: RHEUMATOID ARTHRITIS
     Route: 048
     Dates: start: 20070208, end: 20070620
  11. RHEUMATREX [Concomitant]
     Dosage: UNSPECIFIED
     Route: 048
  12. TENORMIN [Concomitant]
     Indication: ARRHYTHMIA
     Route: 048
     Dates: end: 20070820
  13. PREDNISOLONE [Concomitant]
     Indication: RHEUMATOID ARTHRITIS
     Route: 048
  14. PREDNISOLONE [Concomitant]
     Route: 048
  15. PREDNISOLONE [Concomitant]
     Route: 048
     Dates: end: 20070820

REACTIONS (1)
  - PNEUMOCYSTIS JIROVECI PNEUMONIA [None]
